FAERS Safety Report 7808313-8 (Version None)
Quarter: 2011Q4

REPORT INFORMATION
  Report Type: 
  Country: None (occurrence: None)
  Receive Date: 20111012
  Receipt Date: 20111004
  Transmission Date: 20120403
  Serious: No
  Sender: FDA-Public Use
  Company Number: US-BIOGENIDEC-2011BI037992

PATIENT
  Age: 63 Year
  Sex: Female

DRUGS (3)
  1. AVONEX [Suspect]
     Route: 030
     Dates: start: 20030618, end: 20070801
  2. AVONEX [Suspect]
     Route: 030
     Dates: start: 20080318, end: 20081128
  3. AVONEX [Suspect]
     Indication: MULTIPLE SCLEROSIS
     Route: 030
     Dates: start: 20090327

REACTIONS (4)
  - PAIN [None]
  - INFLUENZA [None]
  - PYREXIA [None]
  - FEELING COLD [None]
